FAERS Safety Report 4842776-5 (Version None)
Quarter: 2005Q4

REPORT INFORMATION
  Report Type: 
  Country: None (occurrence: None)
  Receive Date: 20051128
  Receipt Date: 20051111
  Transmission Date: 20060501
  Serious: Yes (Death)
  Sender: FDA-Public Use
  Company Number: CLOF-10155

PATIENT
  Age: 80 Year
  Sex: Male

DRUGS (15)
  1. CLOFARABINE [Suspect]
     Indication: ACUTE MYELOID LEUKAEMIA
     Dosage: 57.9 MG QD X 5; IV
     Route: 042
     Dates: start: 20041117, end: 20041121
  2. MAXIFLOXACIN [Concomitant]
  3. TRIMETHOPRIM + SULFAMETHOXAZOLE [Concomitant]
  4. LINEZOID [Concomitant]
  5. ZOSYN [Concomitant]
  6. TYLENOL (CAPLET) [Concomitant]
  7. DOCUSATE [Concomitant]
  8. FLOMAX [Concomitant]
  9. PROSCAR [Concomitant]
  10. ALLOPURINOL [Concomitant]
  11. HYDROCORTISONE [Concomitant]
  12. ABELCET [Concomitant]
  13. VANCOMYCIN [Concomitant]
  14. PROTONIX [Concomitant]
  15. CANCIDAS [Concomitant]

REACTIONS (5)
  - BLOOD BILIRUBIN INCREASED [None]
  - DIALYSIS [None]
  - NEUTROPENIA [None]
  - PNEUMONIA [None]
  - RENAL FAILURE [None]
